FAERS Safety Report 11352672 (Version 1)
Quarter: 2015Q3

REPORT INFORMATION
  Report Type: Spontaneous
  Country: US (occurrence: US)
  Receive Date: 20150807
  Receipt Date: 20150807
  Transmission Date: 20151125
  Serious: No
  Sender: FDA-Public Use
  Company Number: US-JNJFOC-20150508722

PATIENT
  Age: 76 Year
  Sex: Female
  Weight: 53.52 kg

DRUGS (4)
  1. BIOIDENTICAL HORMONES [Concomitant]
     Indication: HORMONE THERAPY
     Dosage: YEARS
     Route: 065
  2. MENS ROGAINE EXTRA STRENGTH [Suspect]
     Active Substance: MINOXIDIL
     Indication: ALOPECIA
     Dosage: CLOSE TO A FULL CUP
     Route: 061
     Dates: start: 201410
  3. LEVOTHYROXINE. [Concomitant]
     Active Substance: LEVOTHYROXINE
     Indication: HYPOTHYROIDISM
     Dosage: ONE EVERY MORNING
     Route: 065
  4. MENS ROGAINE EXTRA STRENGTH [Suspect]
     Active Substance: MINOXIDIL
     Route: 061

REACTIONS (5)
  - Drug administered at inappropriate site [Unknown]
  - Hair texture abnormal [Recovered/Resolved]
  - Therapeutic response unexpected [Unknown]
  - Incorrect dose administered [Unknown]
  - Wrong patient received medication [Unknown]
